FAERS Safety Report 23425340 (Version 1)
Quarter: 2024Q1

REPORT INFORMATION
  Report Type: Report from Study
  Country: US (occurrence: US)
  Receive Date: 20240122
  Receipt Date: 20240122
  Transmission Date: 20240410
  Serious: Yes (Other)
  Sender: FDA-Public Use
  Company Number: US-AUROBINDO-AUR-APL-2024-002331

PATIENT
  Age: 13 Year
  Sex: Female

DRUGS (9)
  1. BORTEZOMIB [Suspect]
     Active Substance: BORTEZOMIB
     Indication: Neuropsychiatric lupus
     Dosage: 1.5 MILLIGRAM ON DAYS 1, 4, 8, 11 (FRST 2 DOSES IV, LAST 2 DOSES SQ
     Route: 042
  2. RITUXIMAB [Suspect]
     Active Substance: RITUXIMAB
     Indication: Neuropsychiatric lupus
     Dosage: UNK
     Route: 065
  3. CHLORPROMAZINE [Concomitant]
     Active Substance: CHLORPROMAZINE
     Indication: Neuropsychiatric lupus
     Dosage: UNK
     Route: 065
  4. HALOPERIDOL [Concomitant]
     Active Substance: HALOPERIDOL
     Indication: Neuropsychiatric lupus
     Dosage: UNK
     Route: 065
  5. OLANZAPINE [Concomitant]
     Active Substance: OLANZAPINE
     Indication: Neuropsychiatric lupus
     Dosage: UNK
     Route: 065
  6. QUETIAPINE [Concomitant]
     Active Substance: QUETIAPINE
     Indication: Neuropsychiatric lupus
     Dosage: UNK
     Route: 065
  7. RISPERIDONE [Concomitant]
     Active Substance: RISPERIDONE
     Indication: Neuropsychiatric lupus
     Dosage: UNK
     Route: 065
  8. LORAZEPAM [Concomitant]
     Active Substance: LORAZEPAM
     Indication: Neuropsychiatric lupus
     Dosage: UNK
     Route: 065
  9. LITHIUM [Concomitant]
     Active Substance: LITHIUM
     Indication: Neuropsychiatric lupus
     Dosage: UNK
     Route: 065

REACTIONS (2)
  - Hypogammaglobulinaemia [Unknown]
  - Hypotension [Unknown]
